FAERS Safety Report 6700776-4 (Version None)
Quarter: 2010Q2

REPORT INFORMATION
  Report Type: 
  Country: None (occurrence: None)
  Receive Date: 20100426
  Receipt Date: 20100413
  Transmission Date: 20101027
  Serious: Yes (Hospitalization)
  Sender: FDA-Public Use
  Company Number: 2010BM000025

PATIENT
  Age: 13 Year
  Sex: Female

DRUGS (3)
  1. NAGLAZYME [Suspect]
     Indication: MUCOPOLYSACCHARIDOSIS VI
     Dosage: QW; IVDRP, QW; IVDRP, IVDRP
     Route: 041
     Dates: start: 20071116, end: 20080201
  2. NAGLAZYME [Suspect]
     Indication: MUCOPOLYSACCHARIDOSIS VI
     Dosage: QW; IVDRP, QW; IVDRP, IVDRP
     Route: 041
     Dates: start: 20080730, end: 20091216
  3. NAGLAZYME [Suspect]
     Indication: MUCOPOLYSACCHARIDOSIS VI
     Dosage: QW; IVDRP, QW; IVDRP, IVDRP
     Route: 041
     Dates: start: 20091201

REACTIONS (1)
  - RESPIRATORY FAILURE [None]
